FAERS Safety Report 10637442 (Version 1)
Quarter: 2014Q4

REPORT INFORMATION
  Report Type: Spontaneous
  Country: GB (occurrence: None)
  Receive Date: 20141204
  Receipt Date: 20141204
  Transmission Date: 20150529
  Serious: Yes (Other)
  Sender: FDA-Public Use
  Company Number: NL01PV14.38049

PATIENT
  Age: 60 Year
  Sex: Male
  Weight: 89 kg

DRUGS (4)
  1. UNKNOW SIMVASTATIN [Concomitant]
  2. SOLIFENACIN (SOLIFENACIN) [Concomitant]
     Active Substance: SOLIFENACIN
  3. TAMSULOSIN [Suspect]
     Active Substance: TAMSULOSIN
     Indication: CYSTITIS NONINFECTIVE
     Dates: start: 20140521, end: 20140522
  4. PRIADEL (LITHIUM CARBONATE) [Concomitant]

REACTIONS (2)
  - Burning sensation [None]
  - Hypoaesthesia [None]

NARRATIVE: CASE EVENT DATE: 20140522
